FAERS Safety Report 8887491 (Version 1)
Quarter: 2012Q4

REPORT INFORMATION
  Report Type: Spontaneous
  Country: US (occurrence: None)
  Receive Date: 20121101
  Receipt Date: 20121101
  Transmission Date: 20130627
  Serious: Yes (Hospitalization)
  Sender: FDA-Public Use
  Company Number: None

PATIENT
  Age: 91 Year
  Sex: Female
  Weight: 52.2 kg

DRUGS (8)
  1. ASA [Suspect]
     Dosage: 325MG DAILY PO
CHRONIC
     Route: 048
  2. PRAVACHOL [Concomitant]
  3. KCL [Concomitant]
  4. PRILOSEC [Concomitant]
  5. ISOSORBIDE MONO [Concomitant]
  6. LASIX [Concomitant]
  7. COREG [Concomitant]
  8. ANASTROZOLE [Concomitant]

REACTIONS (5)
  - Anaemia [None]
  - Peptic ulcer [None]
  - Gastric ulcer haemorrhage [None]
  - Nausea [None]
  - Chest pain [None]
